FAERS Safety Report 21615407 (Version 1)
Quarter: 2022Q4

REPORT INFORMATION
  Report Type: Report from Study
  Country: EG (occurrence: EG)
  Receive Date: 20221118
  Receipt Date: 20221118
  Transmission Date: 20230113
  Serious: Yes (Other)
  Sender: FDA-Public Use
  Company Number: EG-002147023-NVSC2022EG257747

PATIENT
  Sex: Female

DRUGS (2)
  1. ENTRESTO [Suspect]
     Active Substance: SACUBITRIL\VALSARTAN
     Indication: Cardiac failure
     Dosage: 50 MG
     Route: 048
  2. ENTRESTO [Suspect]
     Active Substance: SACUBITRIL\VALSARTAN
     Dosage: 100 MG
     Route: 048

REACTIONS (8)
  - Heart disease congenital [Unknown]
  - Growth retardation [Unknown]
  - Oedema due to cardiac disease [Unknown]
  - Abdominal distension [Unknown]
  - Feeling abnormal [Unknown]
  - Mental disorder [Unknown]
  - Fatigue [Unknown]
  - Product dose omission issue [Unknown]
